FAERS Safety Report 24880623 (Version 2)
Quarter: 2025Q1

REPORT INFORMATION
  Report Type: Spontaneous
  Country: US (occurrence: US)
  Receive Date: 20250123
  Receipt Date: 20250130
  Transmission Date: 20250408
  Serious: Yes (Hospitalization, Other)
  Sender: AMGEN
  Company Number: US-AMGEN-USASP2025012764

PATIENT
  Sex: Female

DRUGS (1)
  1. REPATHA [Suspect]
     Active Substance: EVOLOCUMAB
     Indication: Product used for unknown indication
     Dosage: UNK, Q2WK
     Route: 065

REACTIONS (5)
  - Cardiac failure congestive [Unknown]
  - Unevaluable event [Unknown]
  - Renal injury [Unknown]
  - Cardiac disorder [Recovering/Resolving]
  - Malaise [Unknown]
